FAERS Safety Report 8921030 (Version 2)
Quarter: 2012Q4

REPORT INFORMATION
  Report Type: Report from Study
  Country: FR (occurrence: FR)
  Receive Date: 20121123
  Receipt Date: 20121207
  Transmission Date: 20130627
  Serious: Yes (Other)
  Sender: FDA-Public Use
  Company Number: FR-ACTELION-A-CH2012-74938

PATIENT
  Age: 59 Year
  Sex: Male
  Weight: 70 kg

DRUGS (8)
  1. TRACLEER [Suspect]
     Indication: DIGITAL ULCER
     Dosage: 125 mg, bid
     Route: 048
  2. TRACLEER [Suspect]
     Dosage: 62.5 UNK, UNK
     Route: 048
     Dates: start: 20080707
  3. CALCITE D [Concomitant]
  4. KALEORID [Concomitant]
  5. EUPANTOL [Concomitant]
  6. BACTRIM [Concomitant]
  7. RYTHMOL [Concomitant]
  8. ALTEISDUO [Concomitant]

REACTIONS (2)
  - Vascular operation [Recovered/Resolved]
  - Anaemia [Unknown]
